FAERS Safety Report 10041772 (Version 1)
Quarter: 2014Q1

REPORT INFORMATION
  Report Type: Spontaneous
  Country: GB (occurrence: None)
  Receive Date: 20140325
  Receipt Date: 20140325
  Transmission Date: 20141002
  Serious: Yes (Other)
  Sender: FDA-Public Use
  Company Number: CL-556-2014

PATIENT
  Age: 4 Month
  Sex: Female
  Weight: 67.9 kg

DRUGS (2)
  1. CIPROFLOXACIN [Suspect]
     Indication: URINARY TRACT INFECTION
     Route: 048
     Dates: start: 20131109, end: 20131111
  2. TRIMETHOPRIM [Concomitant]

REACTIONS (2)
  - Limb reduction defect [None]
  - Maternal drugs affecting foetus [None]
